FAERS Safety Report 9648577 (Version 2)
Quarter: 2013Q4

REPORT INFORMATION
  Report Type: Report from Study
  Country: DE (occurrence: DE)
  Receive Date: 20131028
  Receipt Date: 20131028
  Transmission Date: 20140711
  Serious: Yes (Hospitalization)
  Sender: FDA-Public Use
  Company Number: DE-ABBVIE-09P-062-0587229-00

PATIENT
  Age: 39 Year
  Sex: Male
  Weight: 78 kg

DRUGS (3)
  1. HUMIRA [Suspect]
     Indication: CROHN^S DISEASE
     Route: 058
     Dates: start: 20081113, end: 20090602
  2. PREDNISOLONE [Concomitant]
     Indication: CROHN^S DISEASE
     Dates: start: 2005, end: 20081120
  3. AZATHIOPRIN [Concomitant]
     Indication: CROHN^S DISEASE
     Dates: start: 2005, end: 20081120

REACTIONS (1)
  - Pustular psoriasis [Recovered/Resolved]
